FAERS Safety Report 7578065-8 (Version None)
Quarter: 2011Q2

REPORT INFORMATION
  Report Type: 
  Country: None (occurrence: None)
  Receive Date: 20110628
  Receipt Date: 20110622
  Transmission Date: 20111010
  Serious: Yes (Other)
  Sender: FDA-Public Use
  Company Number: HR-ROXANE LABORATORIES, INC.-2011-RO-00879RO

PATIENT
  Age: 35 Year
  Sex: Female

DRUGS (3)
  1. ALPRAZOLAM [Suspect]
     Dosage: 3 MG
     Route: 048
     Dates: start: 20100101
  2. ALPRAZOLAM [Suspect]
     Route: 048
  3. ALPRAZOLAM [Suspect]
     Route: 048
     Dates: start: 20100101

REACTIONS (10)
  - HYPOPNOEA [None]
  - PALPITATIONS [None]
  - DEPRESSED MOOD [None]
  - MIDDLE INSOMNIA [None]
  - ABDOMINAL DISCOMFORT [None]
  - ARRHYTHMIA [None]
  - AMENORRHOEA [None]
  - BLOOD PROLACTIN INCREASED [None]
  - GALACTORRHOEA [None]
  - FEAR [None]
